FAERS Safety Report 9444649 (Version 2)
Quarter: 2013Q3

REPORT INFORMATION
  Report Type: Spontaneous
  Country: JP (occurrence: JP)
  Receive Date: 20130807
  Receipt Date: 20130823
  Transmission Date: 20140515
  Serious: Yes (Hospitalization)
  Sender: FDA-Public Use
  Company Number: JP-PFIZER INC-2013228163

PATIENT
  Age: 70 Year
  Sex: Male

DRUGS (1)
  1. HALCION [Suspect]
     Indication: INSOMNIA
     Dosage: ONE TO TWO TABLETS DAILY
     Route: 048

REACTIONS (2)
  - Fall [Recovered/Resolved]
  - Fibula fracture [Recovered/Resolved]
